FAERS Safety Report 18209232 (Version 1)
Quarter: 2020Q3

REPORT INFORMATION
  Report Type: Spontaneous
  Country: US (occurrence: US)
  Receive Date: 20200828
  Receipt Date: 20200828
  Transmission Date: 20201103
  Serious: Yes (Other)
  Sender: FDA-Public Use
  Company Number: US-BRISTOL-MYERS SQUIBB COMPANY-BMS-2020-070252

PATIENT
  Age: 81 Year
  Sex: Male
  Weight: 113.39 kg

DRUGS (2)
  1. ALEVE [Interacting]
     Active Substance: NAPROXEN SODIUM
     Indication: HEADACHE
     Dosage: UNK
     Route: 065
  2. WARFARIN SODIUM. [Suspect]
     Active Substance: WARFARIN SODIUM
     Indication: THROMBOSIS PROPHYLAXIS
     Dosage: UNK
     Route: 065

REACTIONS (6)
  - Headache [Unknown]
  - Gastric ulcer haemorrhage [Recovering/Resolving]
  - Cerebrovascular accident [Recovered/Resolved]
  - Drug interaction [Unknown]
  - Cardiac valve disease [Unknown]
  - Haemoglobin decreased [Unknown]

NARRATIVE: CASE EVENT DATE: 20200406
